FAERS Safety Report 9804118 (Version 3)
Quarter: 2015Q2

REPORT INFORMATION
  Report Type: Report from Study
  Country: US (occurrence: US)
  Receive Date: 20140108
  Receipt Date: 20150414
  Transmission Date: 20150821
  Serious: Yes (Hospitalization, Other)
  Sender: FDA-Public Use
  Company Number: US-ROCHE-769788

PATIENT
  Age: 51 Year
  Sex: Male

DRUGS (8)
  1. ENOXAPARIN [Suspect]
     Active Substance: ENOXAPARIN
     Indication: PULMONARY EMBOLISM
     Route: 058
  2. BLINDED VISMODEGIB [Suspect]
     Active Substance: VISMODEGIB
     Route: 048
     Dates: start: 20101117, end: 20101221
  3. FLUOROURACIL. [Suspect]
     Active Substance: FLUOROURACIL
     Indication: GASTRIC CANCER
     Dosage: ADMINISTERED OVER 46-48 HOURS
     Route: 042
     Dates: start: 20101117
  4. FOLINIC ACID [Suspect]
     Active Substance: LEUCOVORIN
     Indication: GASTRIC CANCER
     Dosage: ADMINISTERED OVER TWO HOURS
     Route: 042
     Dates: start: 20101117
  5. FLUOROURACIL. [Suspect]
     Active Substance: FLUOROURACIL
     Route: 042
     Dates: start: 20101117
  6. OXALIPLATIN. [Suspect]
     Active Substance: OXALIPLATIN
     Indication: GASTRIC CANCER
     Dosage: OVER 2 HOURS ON DAY 1
     Route: 042
  7. BLINDED VISMODEGIB [Suspect]
     Active Substance: VISMODEGIB
     Indication: GASTRIC CANCER
     Route: 048
     Dates: start: 20101117, end: 20101221
  8. IRINOTECAN [Suspect]
     Active Substance: IRINOTECAN
     Indication: GASTRIC CANCER
     Route: 065

REACTIONS (4)
  - Anaemia [Unknown]
  - Thrombosis [Unknown]
  - Oesophageal haemorrhage [Unknown]
  - Embolism [Unknown]

NARRATIVE: CASE EVENT DATE: 20101222
